FAERS Safety Report 7341808-2 (Version None)
Quarter: 2011Q1

REPORT INFORMATION
  Report Type: 
  Country: None (occurrence: None)
  Receive Date: 20110309
  Receipt Date: 20110301
  Transmission Date: 20110831
  Serious: Yes (Other)
  Sender: FDA-Public Use
  Company Number: US-US-EMD SERONO, INC.-7004740

PATIENT
  Sex: Female

DRUGS (4)
  1. TOPIRAMATE [Concomitant]
     Indication: WEIGHT DECREASED
     Route: 048
  2. CYMBALTA [Concomitant]
     Indication: ANXIETY
     Route: 048
  3. REBIF [Suspect]
     Indication: MULTIPLE SCLEROSIS
     Route: 058
     Dates: start: 20100326, end: 20100413
  4. MERIDIA [Concomitant]

REACTIONS (2)
  - SUICIDAL BEHAVIOUR [None]
  - DEPRESSION [None]
